FAERS Safety Report 15123461 (Version 1)
Quarter: 2018Q3

REPORT INFORMATION
  Report Type: Other
  Country: FR (occurrence: FR)
  Receive Date: 20180710
  Receipt Date: 20180710
  Transmission Date: 20181010
  Serious: Yes (Hospitalization, Other)
  Sender: FDA-Public Use
  Company Number: FR-MACLEODS PHARMACEUTICALS US LTD-MAC2018014654

PATIENT

DRUGS (8)
  1. RILMENIDINE [Suspect]
     Active Substance: RILMENIDINE
     Indication: HYPERTENSION
     Dosage: UNK
     Route: 048
  2. PERINDOPRIL [Suspect]
     Active Substance: PERINDOPRIL
     Indication: HYPERTENSION
     Dosage: UNK,EVERY NIGHT AROUND 07:00 PM
     Route: 065
     Dates: start: 2017
  3. SPIRONOLACTONE. [Suspect]
     Active Substance: SPIRONOLACTONE
     Indication: HYPERTENSION
     Dosage: UNK, TABLET IN THE MORNING
     Route: 048
     Dates: start: 2016
  4. TRAMADOL / ACETAMINOPHEN [Suspect]
     Active Substance: ACETAMINOPHEN\TRAMADOL
     Indication: ARTHRALGIA
     Dosage: UNK, COATED TABLETS
     Route: 048
  5. NEBIVOLOL TABLET [Suspect]
     Active Substance: NEBIVOLOL
     Indication: HYPERTENSION
     Dosage: UNK
     Route: 048
  6. ASPIRIN. [Concomitant]
     Active Substance: ASPIRIN
     Indication: POSTOPERATIVE CARE
     Dosage: UNK
     Route: 065
  7. ALDACTAZINE [Concomitant]
     Active Substance: ALTHIAZIDE\SPIRONOLACTONE
     Indication: HYPERTENSION
     Dosage: UNK
     Route: 065
  8. NISISCO [Concomitant]
     Active Substance: HYDROCHLOROTHIAZIDE\VALSARTAN
     Indication: HYPERTENSION
     Dosage: UNK
     Route: 065

REACTIONS (21)
  - Arthralgia [Unknown]
  - Acute kidney injury [Unknown]
  - Labelled drug-drug interaction medication error [Unknown]
  - Dyspnoea [Unknown]
  - Fatigue [Unknown]
  - Blood pressure increased [None]
  - Nausea [Unknown]
  - Vasculitis [Unknown]
  - Drug ineffective [Unknown]
  - Wrong schedule [Unknown]
  - Medication error [Unknown]
  - Feeling hot [Unknown]
  - Diarrhoea [Unknown]
  - Cough [None]
  - Tachycardia [Unknown]
  - Asthma [Unknown]
  - Abdominal pain [Unknown]
  - Myalgia [Unknown]
  - Palpitations [Unknown]
  - Asthma [None]
  - Cough [Unknown]
